FAERS Safety Report 7004029-9 (Version None)
Quarter: 2010Q3

REPORT INFORMATION
  Report Type: 
  Country: None (occurrence: None)
  Receive Date: 20100920
  Receipt Date: 20100108
  Transmission Date: 20110219
  Serious: No
  Sender: FDA-Public Use
  Company Number: US-WYE-H12955110

PATIENT
  Sex: Male
  Weight: 102.15 kg

DRUGS (5)
  1. PRISTIQ [Suspect]
     Indication: DEPRESSION
     Route: 048
     Dates: start: 20100105
  2. ACTOS [Concomitant]
  3. CLONAZEPAM [Concomitant]
  4. GLUCOPHAGE [Concomitant]
  5. LANTUS [Concomitant]

REACTIONS (4)
  - ABDOMINAL PAIN UPPER [None]
  - CONDITION AGGRAVATED [None]
  - INSOMNIA [None]
  - RESTLESS LEGS SYNDROME [None]
